FAERS Safety Report 9323264 (Version 1)
Quarter: 2013Q2

REPORT INFORMATION
  Report Type: Spontaneous
  Country: US (occurrence: US)
  Receive Date: 20130603
  Receipt Date: 20130603
  Transmission Date: 20140414
  Serious: No
  Sender: FDA-Public Use
  Company Number: US-BIOGENIDEC-2013BI048987

PATIENT
  Age: 54 Year
  Sex: Male

DRUGS (8)
  1. TYSABRI [Suspect]
     Indication: MULTIPLE SCLEROSIS
     Route: 042
     Dates: start: 20121227
  2. MORPHINE SULFATE ER [Concomitant]
     Indication: NEURALGIA
     Route: 048
  3. MORPHINE SULFATE IR [Concomitant]
     Indication: NEURALGIA
     Route: 048
  4. VENLAFAXINE [Concomitant]
     Indication: ANXIETY
     Route: 048
  5. WELLBUTRIN [Concomitant]
     Indication: DEPRESSION
     Route: 048
  6. RITALIN [Concomitant]
     Indication: ASTHENIA
     Route: 048
  7. TOPAMAX [Concomitant]
     Indication: PAIN
     Route: 048
  8. METFORMIN [Concomitant]
     Indication: DIABETES PROPHYLAXIS
     Route: 048

REACTIONS (9)
  - Tremor [Not Recovered/Not Resolved]
  - Visual field defect [Not Recovered/Not Resolved]
  - Central nervous system lesion [Not Recovered/Not Resolved]
  - Pain in extremity [Not Recovered/Not Resolved]
  - Abnormal sensation in eye [Not Recovered/Not Resolved]
  - Eye pain [Not Recovered/Not Resolved]
  - Balance disorder [Recovered/Resolved]
  - Bipolar I disorder [Not Recovered/Not Resolved]
  - Anger [Not Recovered/Not Resolved]
